FAERS Safety Report 6811483-1 (Version None)
Quarter: 2010Q2

REPORT INFORMATION
  Report Type: 
  Country: None (occurrence: None)
  Receive Date: 20100629
  Receipt Date: 20100629
  Transmission Date: 20101027
  Serious: Yes (Life-Threatening, Hospitalization)
  Sender: FDA-Public Use
  Company Number: None

PATIENT
  Age: 58 Year
  Sex: Female
  Weight: 90.7194 kg

DRUGS (1)
  1. TAPENTADOL [Suspect]
     Indication: NEUROPATHY PERIPHERAL
     Dosage: 50 MG 4 TIMES DALY PRN PO
     Route: 048
     Dates: start: 20100521, end: 20100522

REACTIONS (4)
  - DRUG INTERACTION [None]
  - FEELING ABNORMAL [None]
  - HEART RATE INCREASED [None]
  - HYPERTENSION [None]
